FAERS Safety Report 18493738 (Version 1)
Quarter: 2020Q4

REPORT INFORMATION
  Report Type: Other
  Country: BR (occurrence: BR)
  Receive Date: 20201112
  Receipt Date: 20201112
  Transmission Date: 20210114
  Serious: Yes (Death)
  Sender: FDA-Public Use
  Company Number: BR-TEIKOKU PHARMA USA-TPU2020-00861

PATIENT
  Age: 15 Year
  Sex: Female

DRUGS (3)
  1. CAFFEINE. [Concomitant]
     Active Substance: CAFFEINE
  2. LIDOCAINE PATCH 5% [Suspect]
     Active Substance: LIDOCAINE
     Indication: PRODUCT USED FOR UNKNOWN INDICATION
     Route: 065
  3. FLUNITRAZEPAM [Concomitant]
     Active Substance: FLUNITRAZEPAM

REACTIONS (3)
  - Completed suicide [Fatal]
  - Death [Fatal]
  - Accidental exposure to product [Unknown]
